FAERS Safety Report 20483777 (Version 1)
Quarter: 2022Q1

REPORT INFORMATION
  Report Type: Spontaneous
  Country: US (occurrence: US)
  Receive Date: 20220217
  Receipt Date: 20220217
  Transmission Date: 20220423
  Serious: Yes (Other)
  Sender: FDA-Public Use
  Company Number: US-SA-SAC20220214000702

PATIENT
  Sex: Female

DRUGS (1)
  1. AUBAGIO [Suspect]
     Active Substance: TERIFLUNOMIDE
     Indication: Demyelination
     Dosage: 14 MG, QD
     Route: 048
     Dates: start: 201610

REACTIONS (3)
  - Demyelination [Unknown]
  - Condition aggravated [Unknown]
  - Product use in unapproved indication [Unknown]
